FAERS Safety Report 8490666-1 (Version None)
Quarter: 2012Q3

REPORT INFORMATION
  Report Type: 
  Country: None (occurrence: None)
  Receive Date: 20120705
  Receipt Date: 20120626
  Transmission Date: 20120928
  Serious: Yes (Hospitalization)
  Sender: FDA-Public Use
  Company Number: US-CELGENEUS-163-21880-12051247

PATIENT
  Sex: Female
  Weight: 42.676 kg

DRUGS (8)
  1. NORCO [Concomitant]
     Indication: PAIN
     Route: 048
  2. ASCORBIC ACID [Concomitant]
     Route: 048
  3. OMEPRAZOLE [Concomitant]
     Route: 048
  4. LASIX [Concomitant]
     Route: 048
  5. BETHANECHOL [Concomitant]
     Route: 048
  6. FLOMAX [Concomitant]
     Route: 048
  7. REVLIMID [Suspect]
     Indication: MYELODYSPLASTIC SYNDROME
     Dosage: 10 MILLIGRAM
     Route: 048
     Dates: start: 20120309, end: 20120318
  8. REVLIMID [Suspect]
     Indication: MYELOFIBROSIS
     Dosage: 10 MILLIGRAM
     Route: 048
     Dates: start: 20120601, end: 20120613

REACTIONS (3)
  - MYELODYSPLASTIC SYNDROME [None]
  - ANAEMIA [None]
  - RENAL FAILURE ACUTE [None]
